FAERS Safety Report 17517597 (Version 4)
Quarter: 2020Q2

REPORT INFORMATION
  Report Type: Report from Study
  Country: US (occurrence: US)
  Receive Date: 20200309
  Receipt Date: 20200413
  Transmission Date: 20200713
  Serious: Yes (Other)
  Sender: FDA-Public Use
  Company Number: NVSC2020US064273

PATIENT
  Sex: Female

DRUGS (1)
  1. ENTRESTO [Suspect]
     Active Substance: SACUBITRIL\VALSARTAN
     Indication: CARDIAC FAILURE CHRONIC
     Dosage: 24.26 MG, BID
     Route: 048
     Dates: start: 20200228

REACTIONS (3)
  - Fatigue [Recovered/Resolved]
  - Orthostatic hypotension [Unknown]
  - Hypotension [Recovering/Resolving]
